FAERS Safety Report 11562343 (Version 1)
Quarter: 2015Q3

REPORT INFORMATION
  Report Type: Spontaneous
  Country: NZ (occurrence: NZ)
  Receive Date: 20150928
  Receipt Date: 20150928
  Transmission Date: 20151125
  Serious: Yes (Other)
  Sender: FDA-Public Use
  Company Number: NZ-JUBILANT CADISTA PHARMACEUTICALS-2015JUB00289

PATIENT
  Age: 55 Year
  Sex: Male

DRUGS (2)
  1. ALENDRONATE [Suspect]
     Active Substance: ALENDRONATE SODIUM
     Dosage: 70 MG FORTNIGHTLY
  2. ALENDRONATE [Suspect]
     Active Substance: ALENDRONATE SODIUM
     Dosage: 70 MG, 1X/WEEK

REACTIONS (9)
  - Foot fracture [Recovered/Resolved]
  - Body height decreased [Not Recovered/Not Resolved]
  - Renal transplant [Unknown]
  - Patella fracture [Recovered/Resolved]
  - Renal failure [Recovered/Resolved]
  - Rib fracture [Recovered/Resolved]
  - Hypophosphatasia [Recovered/Resolved]
  - Osteomalacia [Recovered/Resolved]
  - Spinal fracture [Recovered/Resolved]
